FAERS Safety Report 7884971-7 (Version None)
Quarter: 2011Q4

REPORT INFORMATION
  Report Type: 
  Country: None (occurrence: None)
  Receive Date: 20111102
  Receipt Date: 20111101
  Transmission Date: 20120403
  Serious: Yes (Death, Hospitalization)
  Sender: FDA-Public Use
  Company Number: US-VERTEX PHARMACEUTICALS INC.-AE-2011-002656

PATIENT
  Age: 47 Year
  Sex: Female

DRUGS (3)
  1. COPEGUS [Concomitant]
     Indication: HEPATITIS C
     Dates: start: 20110816, end: 20111017
  2. PEGASYS [Concomitant]
     Indication: HEPATITIS C
     Dates: start: 20110816, end: 20111017
  3. INCIVEK [Suspect]
     Indication: HEPATITIS C
     Route: 048
     Dates: start: 20110816, end: 20111017

REACTIONS (4)
  - VASCULITIS [None]
  - HYPOTENSION [None]
  - HAEMOLYTIC ANAEMIA [None]
  - VENTRICULAR FIBRILLATION [None]
